FAERS Safety Report 12233728 (Version 1)
Quarter: 2016Q2

REPORT INFORMATION
  Report Type: Spontaneous
  Country: US (occurrence: US)
  Receive Date: 20160404
  Receipt Date: 20160404
  Transmission Date: 20160815
  Serious: No
  Sender: FDA-Public Use
  Company Number: US-BAYER-2016-058988

PATIENT
  Age: 74 Year
  Sex: Female
  Weight: 65.76 kg

DRUGS (1)
  1. CLARITIN-D 12 HOUR [Suspect]
     Active Substance: LORATADINE\PSEUDOEPHEDRINE SULFATE
     Indication: VERTIGO
     Dosage: 1 DF, PRN
     Route: 048
     Dates: start: 20160321

REACTIONS (2)
  - Therapeutic response unexpected [None]
  - Product use issue [None]
